FAERS Safety Report 16367248 (Version 1)
Quarter: 2019Q2

REPORT INFORMATION
  Report Type: Report from Study
  Country: CO (occurrence: CO)
  Receive Date: 20190529
  Receipt Date: 20190529
  Transmission Date: 20190711
  Serious: Yes (Hospitalization, Other)
  Sender: FDA-Public Use
  Company Number: PHHY2018CO197878

PATIENT
  Sex: Female
  Weight: 46 kg

DRUGS (1)
  1. REVOLADE [Suspect]
     Active Substance: ELTROMBOPAG
     Indication: THROMBOCYTOPENIA
     Dosage: 50 MG, QD
     Route: 048
     Dates: start: 20180629

REACTIONS (4)
  - Respiratory arrest [Unknown]
  - Hypersensitivity [Unknown]
  - Chest pain [Recovered/Resolved with Sequelae]
  - Myocardial infarction [Unknown]
